FAERS Safety Report 5397399-9 (Version None)
Quarter: 2007Q3

REPORT INFORMATION
  Report Type: 
  Country: None (occurrence: None)
  Receive Date: 20070726
  Receipt Date: 20070723
  Transmission Date: 20080115
  Serious: Yes (Other)
  Sender: FDA-Public Use
  Company Number: PHEH2007US10257

PATIENT
  Sex: Female

DRUGS (1)
  1. TEKTURNA [Suspect]
     Route: 048

REACTIONS (2)
  - CATARACT OPERATION [None]
  - PHOTOPHOBIA [None]
